FAERS Safety Report 6588047-0 (Version None)
Quarter: 2010Q1

REPORT INFORMATION
  Report Type: 
  Country: None (occurrence: None)
  Receive Date: 20100218
  Receipt Date: 20100209
  Transmission Date: 20100710
  Serious: Yes (Other)
  Sender: FDA-Public Use
  Company Number: US-AMGEN-US374095

PATIENT
  Sex: Male
  Weight: 76 kg

DRUGS (1)
  1. NEUPOGEN [Suspect]
     Indication: PERIPHERAL BLOOD STEM CELL APHERESIS
     Route: 058
     Dates: start: 20090924, end: 20090927

REACTIONS (1)
  - AUTOIMMUNE THROMBOCYTOPENIA [None]
